FAERS Safety Report 9231030 (Version 2)
Quarter: 2013Q3

REPORT INFORMATION
  Report Type: Spontaneous
  Country: BR (occurrence: BR)
  Receive Date: 20130415
  Receipt Date: 20130802
  Transmission Date: 20140515
  Serious: No
  Sender: FDA-Public Use
  Company Number: BR-ROCHE-1213205

PATIENT
  Sex: Female
  Weight: 50 kg

DRUGS (1)
  1. ROACUTAN [Suspect]
     Indication: ACNE
     Route: 048
     Dates: start: 20130113, end: 20130410

REACTIONS (2)
  - Pregnancy [Unknown]
  - Acne [Not Recovered/Not Resolved]
